FAERS Safety Report 15052505 (Version 1)
Quarter: 2018Q2

REPORT INFORMATION
  Report Type: Spontaneous
  Country: US (occurrence: US)
  Receive Date: 20180622
  Receipt Date: 20180622
  Transmission Date: 20180711
  Serious: Yes (Death)
  Sender: FDA-Public Use
  Company Number: US-DENDREON PHARMACEUTICALS LLC-2018DEN000148

PATIENT

DRUGS (1)
  1. PROVENGE [Suspect]
     Active Substance: SIPULEUCEL-T
     Indication: PROSTATE CANCER

REACTIONS (1)
  - Disease progression [Fatal]
